FAERS Safety Report 4751514-6 (Version None)
Quarter: 2005Q3

REPORT INFORMATION
  Report Type: 
  Country: None (occurrence: None)
  Receive Date: 20050822
  Receipt Date: 20050811
  Transmission Date: 20060218
  Serious: Yes (Hospitalization)
  Sender: FDA-Public Use
  Company Number: 2004240455FR

PATIENT
  Age: 83 Year
  Sex: Female

DRUGS (7)
  1. ALDACTONE [Suspect]
     Indication: ILL-DEFINED DISORDER
     Dosage: 1 DOSE FORM (QD), ORAL
     Route: 048
     Dates: start: 20030615
  2. DILTIAZEM [Suspect]
     Indication: ILL-DEFINED DISORDER
     Dosage: 300 MG (300 MG, QD), ORAL
     Route: 048
     Dates: start: 19990615
  3. LEBOCAR (CARBIDOPA, LEVODOPA) [Suspect]
     Indication: ILL-DEFINED DISORDER
     Dosage: 3 DOSE FORM (QD), ORAL
     Route: 048
     Dates: start: 19970615, end: 20040904
  4. OMEPRAZOLE [Suspect]
     Indication: ILL-DEFINED DISORDER
     Dosage: 10 MG (10 MG, DAILY), ORAL
     Route: 048
     Dates: start: 20030615
  5. PLAVIX [Suspect]
     Indication: ILL-DEFINED DISORDER
     Dosage: 75 MG (QD), ORAL
     Route: 048
     Dates: start: 20040615, end: 20040820
  6. BENSERAZIDE (BENSERAZIDE) [Suspect]
     Indication: ILL-DEFINED DISORDER
     Dosage: 3 DF (DAILY)
     Dates: start: 19970615, end: 20040904
  7. ADANCOR (NICORANDIL) [Suspect]
     Indication: ILL-DEFINED DISORDER
     Dosage: 10 MG (10 MD, DAILY), ORAL
     Route: 048
     Dates: start: 19960616

REACTIONS (2)
  - DRUG INEFFECTIVE [None]
  - THROMBOTIC THROMBOCYTOPENIC PURPURA [None]
